FAERS Safety Report 17243920 (Version 3)
Quarter: 2021Q1

REPORT INFORMATION
  Report Type: Spontaneous
  Country: FR (occurrence: FR)
  Receive Date: 20200107
  Receipt Date: 20210218
  Transmission Date: 20210419
  Serious: Yes (Other)
  Sender: FDA-Public Use
  Company Number: FR-JNJFOC-20200104468

PATIENT
  Age: 47 Year
  Sex: Male
  Weight: 73 kg

DRUGS (2)
  1. VERMOX [Suspect]
     Active Substance: MEBENDAZOLE
     Indication: HEPATIC ECHINOCOCCIASIS
     Route: 048
  2. VERMOX [Suspect]
     Active Substance: MEBENDAZOLE
     Route: 048
     Dates: start: 2019, end: 20190807

REACTIONS (1)
  - Hepatocellular injury [Recovered/Resolved]

NARRATIVE: CASE EVENT DATE: 2019
